FAERS Safety Report 8851400 (Version 1)
Quarter: 2012Q4

REPORT INFORMATION
  Report Type: 
  Country: VE (occurrence: VE)
  Receive Date: 20121022
  Receipt Date: 20121022
  Transmission Date: 20130627
  Serious: Yes (Other)
  Sender: FDA-Public Use
  Company Number: VE-ROCHE-1147129

PATIENT
  Sex: Female

DRUGS (6)
  1. XOLAIR [Suspect]
     Indication: ASTHMA
     Route: 058
     Dates: start: 201209
  2. XOLAIR [Suspect]
     Route: 058
     Dates: start: 2012
  3. SERETIDE [Concomitant]
     Indication: ASTHMA
     Route: 055
  4. SPIRIVA [Concomitant]
     Indication: ASTHMA
     Route: 055
     Dates: start: 2011
  5. COZAAR [Concomitant]
  6. LEXOTANIL [Concomitant]
     Route: 048

REACTIONS (1)
  - Hypertension [Recovered/Resolved]
